FAERS Safety Report 10639814 (Version 1)
Quarter: 2014Q4

REPORT INFORMATION
  Report Type: Spontaneous
  Country: US (occurrence: None)
  Receive Date: 20141205
  Receipt Date: 20141205
  Transmission Date: 20150529
  Serious: Yes (Life-Threatening)
  Sender: FDA-Public Use
  Company Number: None

PATIENT
  Age: 66 Year
  Sex: Female
  Weight: 70 kg

DRUGS (1)
  1. XELJANZ [Suspect]
     Active Substance: TOFACITINIB CITRATE
     Indication: RHEUMATOID ARTHRITIS
     Dosage: 12/2/14 ONE AM AND PM, 5MG, BID, ORAL
     Route: 048
     Dates: start: 20141202

REACTIONS (6)
  - Eyelid oedema [None]
  - Dyspnoea [None]
  - Asthenia [None]
  - Blood pressure increased [None]
  - Swelling face [None]
  - Photopsia [None]

NARRATIVE: CASE EVENT DATE: 20141203
